FAERS Safety Report 6267524-6 (Version None)
Quarter: 2009Q3

REPORT INFORMATION
  Report Type: 
  Country: None (occurrence: None)
  Receive Date: 20090714
  Receipt Date: 20090707
  Transmission Date: 20100115
  Serious: Yes (Hospitalization)
  Sender: FDA-Public Use
  Company Number: FR-WYE-G03498809

PATIENT
  Sex: Female

DRUGS (3)
  1. EFFEXOR [Suspect]
     Indication: MAJOR DEPRESSION
     Dosage: UNKNOWN DOSE FROM AN UNKNOWN DATE TO JUL-2008, AND THEN 225 MG TOTAL DAILY FROM JUL-2008
     Route: 048
  2. ORAP [Concomitant]
     Dosage: UNKNOWN
  3. LITHIUM [Concomitant]
     Dosage: UNKNOWN

REACTIONS (2)
  - ENDOCRINE NEOPLASM [None]
  - HYPOGLYCAEMIA [None]
